FAERS Safety Report 8400537-4 (Version None)
Quarter: 2012Q2

REPORT INFORMATION
  Report Type: 
  Country: None (occurrence: None)
  Receive Date: 20120531
  Receipt Date: 20120522
  Transmission Date: 20120825
  Serious: Yes (Hospitalization)
  Sender: FDA-Public Use
  Company Number: US-ABBOTT-12P-163-0919192-00

PATIENT
  Age: 27 Year
  Sex: Female

DRUGS (6)
  1. HUMIRA [Suspect]
     Indication: CROHN'S DISEASE
     Dosage: LOADING DOSE
     Dates: start: 20120323, end: 20120323
  2. HUMIRA [Suspect]
  3. CALCIUM WITH VITAMIN D SUPPLEMENT [Concomitant]
     Indication: PRODUCT USED FOR UNKNOWN INDICATION
     Dosage: DAILY
  4. CREON [Concomitant]
     Indication: PANCREATIC DISORDER
     Dosage: 1 CAP BEFORE EACH MEAL
  5. MULTI-VITAMIN [Concomitant]
     Indication: VITAMIN SUPPLEMENTATION
     Dosage: DAILY
  6. ALENDRONATE SODIUM [Concomitant]
     Indication: BONE DISORDER
     Dosage: WEEKLY

REACTIONS (4)
  - SUICIDAL IDEATION [None]
  - INJECTION SITE PAIN [None]
  - CONFUSIONAL STATE [None]
  - INJECTION SITE HAEMATOMA [None]
